FAERS Safety Report 23226442 (Version 1)
Quarter: 2023Q4

REPORT INFORMATION
  Report Type: Spontaneous
  Country: BR (occurrence: BR)
  Receive Date: 20231124
  Receipt Date: 20231124
  Transmission Date: 20240110
  Serious: Yes (Other)
  Sender: FDA-Public Use
  Company Number: BR-PFIZER INC-PV202300189238

PATIENT
  Age: 68 Year
  Sex: Male

DRUGS (1)
  1. VYNDAQEL [Suspect]
     Active Substance: TAFAMIDIS MEGLUMINE
     Indication: Amyloidosis
     Dosage: UNK
     Dates: start: 2022

REACTIONS (2)
  - Angina pectoris [Unknown]
  - Drug ineffective [Unknown]
